FAERS Safety Report 24784631 (Version 1)
Quarter: 2024Q4

REPORT INFORMATION
  Report Type: Report from Study
  Country: US (occurrence: US)
  Receive Date: 20241227
  Receipt Date: 20241227
  Transmission Date: 20250115
  Serious: Yes (Hospitalization, Other)
  Sender: HLS THERAPEUTICS
  Company Number: US-HLS-202402164

PATIENT
  Age: 58 Year
  Sex: Male

DRUGS (1)
  1. CLOZAPINE [Suspect]
     Active Substance: CLOZAPINE
     Dosage: 100MG AT BEDTIME 14 TABLETS AND?25MG MORNING, EVENING AND NIGHT WHICH TOTALS 42 TABLETS
     Route: 065

REACTIONS (5)
  - Anxiety [Unknown]
  - Bipolar disorder [Unknown]
  - Dementia [Unknown]
  - Insomnia [Unknown]
  - Schizophrenia [Unknown]

NARRATIVE: CASE EVENT DATE: 20240503
